FAERS Safety Report 23881669 (Version 1)
Quarter: 2024Q2

REPORT INFORMATION
  Report Type: Spontaneous
  Country: US (occurrence: US)
  Receive Date: 20240521
  Receipt Date: 20240521
  Transmission Date: 20240716
  Serious: No
  Sender: FDA-Public Use
  Company Number: US-SA-SAC20240515001041

PATIENT
  Age: 4 Year
  Sex: Female

DRUGS (1)
  1. DUPIXENT [Suspect]
     Active Substance: DUPILUMAB
     Indication: Dermatitis atopic
     Dosage: 300 MG, Q4W
     Route: 058

REACTIONS (6)
  - Injection site erythema [Unknown]
  - Dermatitis atopic [Not Recovered/Not Resolved]
  - Skin haemorrhage [Unknown]
  - Pruritus [Unknown]
  - Dry skin [Unknown]
  - Therapeutic response decreased [Unknown]
